FAERS Safety Report 21190165 (Version 4)
Quarter: 2022Q3

REPORT INFORMATION
  Report Type: Spontaneous
  Country: CH (occurrence: CH)
  Receive Date: 20220809
  Receipt Date: 20220907
  Transmission Date: 20221027
  Serious: Yes (Hospitalization)
  Sender: FDA-Public Use
  Company Number: CH-NOVARTISPH-NVSC2022CH176121

PATIENT
  Sex: Male

DRUGS (10)
  1. AMOXICILLIN [Suspect]
     Active Substance: AMOXICILLIN
     Indication: Tooth disorder
     Dosage: 750 MG, TID
     Route: 065
     Dates: start: 20220722, end: 20220727
  2. AMOXICILLIN [Suspect]
     Active Substance: AMOXICILLIN
     Dosage: 750 MG
     Route: 065
  3. CARVEDILOL [Concomitant]
     Active Substance: CARVEDILOL
     Indication: Product used for unknown indication
     Dosage: 26 MG (1-0-0)
     Route: 065
     Dates: start: 20220519
  4. ESCITALOPRAM [Concomitant]
     Active Substance: ESCITALOPRAM OXALATE
     Indication: Product used for unknown indication
     Dosage: 10 MG (1.5-0-0)
     Route: 065
     Dates: start: 202109
  5. TRIMIPRAMINE [Concomitant]
     Active Substance: TRIMIPRAMINE
     Indication: Product used for unknown indication
     Dosage: 25 MG (0-0-0- 1.5)
     Route: 065
     Dates: start: 202112
  6. JANUMET [Concomitant]
     Active Substance: METFORMIN HYDROCHLORIDE\SITAGLIPTIN PHOSPHATE
     Indication: Product used for unknown indication
     Dosage: UNK (0-0-1/1- 0-0-)
     Route: 065
  7. JANUVIA [Concomitant]
     Active Substance: SITAGLIPTIN PHOSPHATE
     Indication: Product used for unknown indication
     Dosage: UNK (0-0-1/1- 0-0-)
     Route: 065
  8. AMAVITA ACETYLCYSTEIN [Concomitant]
     Indication: Product used for unknown indication
     Dosage: UNK (1-0-0)
     Route: 065
     Dates: start: 202109
  9. SODIUM CHONDROITIN SULFATE [Concomitant]
     Active Substance: SODIUM CHONDROITIN SULFATE
     Indication: Product used for unknown indication
     Dosage: UNK (0-1-0)
     Route: 065
     Dates: start: 202111
  10. CALCIUM SULFATE\HERBALS [Concomitant]
     Active Substance: CALCIUM SULFATE\HERBALS
     Indication: Product used for unknown indication
     Dosage: UNK
     Route: 065

REACTIONS (3)
  - Diarrhoea haemorrhagic [Recovered/Resolved]
  - Product odour abnormal [Recovered/Resolved]
  - Product taste abnormal [Recovered/Resolved]

NARRATIVE: CASE EVENT DATE: 20220722
